FAERS Safety Report 16799651 (Version 1)
Quarter: 2019Q3

REPORT INFORMATION
  Report Type: Spontaneous
  Country: US (occurrence: US)
  Receive Date: 20190723
  Receipt Date: 20190723
  Transmission Date: 20191005
  Serious: No
  Sender: FDA-Public Use
  Company Number: None

PATIENT
  Age: 57 Year
  Sex: Female

DRUGS (1)
  1. AUBAGIO [Suspect]
     Active Substance: TERIFLUNOMIDE
     Route: 048
     Dates: start: 201906

REACTIONS (5)
  - Skin exfoliation [None]
  - Diarrhoea [None]
  - Weight decreased [None]
  - Pruritus [None]
  - Vision blurred [None]

NARRATIVE: CASE EVENT DATE: 20190723
